FAERS Safety Report 8055134-X (Version None)
Quarter: 2012Q1

REPORT INFORMATION
  Report Type: 
  Country: None (occurrence: None)
  Receive Date: 20120119
  Receipt Date: 20120117
  Transmission Date: 20120608
  Serious: No
  Sender: FDA-Public Use
  Company Number: US-B.I. PHARMACEUTICALS,INC./RIDGEFIELD-2012-BP-00927BP

PATIENT
  Sex: Female

DRUGS (8)
  1. PRADAXA [Suspect]
     Indication: ATRIAL FIBRILLATION
     Dosage: 300 MG
     Route: 048
     Dates: start: 20111001
  2. ATENOLOL [Concomitant]
     Indication: HYPERTENSION
     Dosage: 25 MG
     Route: 048
  3. CALCIUM PLUS MAGNESIUM [Concomitant]
     Indication: PROPHYLAXIS
     Route: 048
  4. NIZORAL [Concomitant]
     Indication: FUNGAL INFECTION
     Route: 061
     Dates: start: 20110801
  5. DHA FISH OIL [Concomitant]
     Indication: PROPHYLAXIS
     Route: 048
  6. PROBIOTIC [Concomitant]
     Indication: PROPHYLAXIS
     Route: 048
  7. SYNTHROID [Concomitant]
     Indication: HYPOTHYROIDISM
     Route: 048
  8. CENTRUM MULTIVITAMIN [Concomitant]
     Indication: PROPHYLAXIS
     Route: 048

REACTIONS (2)
  - AGE-RELATED MACULAR DEGENERATION [None]
  - VISUAL IMPAIRMENT [None]
